FAERS Safety Report 23536704 (Version 2)
Quarter: 2024Q1

REPORT INFORMATION
  Report Type: Spontaneous
  Country: DE (occurrence: DE)
  Receive Date: 20240219
  Receipt Date: 20240228
  Transmission Date: 20240410
  Serious: Yes (Other)
  Sender: FDA-Public Use
  Company Number: DE-BAXTER-2023BAX037080

PATIENT
  Age: 70 Year
  Sex: Female

DRUGS (28)
  1. CYCLOPHOSPHAMIDE [Suspect]
     Active Substance: CYCLOPHOSPHAMIDE
     Indication: Plasma cell myeloma
     Dosage: UNK, AS A PART OF DARA-KTD-PACE REGIMEN, FIRST ROUTE OF ADMIN (FREE TEXT): UNKNOWN ROUTE
     Route: 065
  2. CYCLOPHOSPHAMIDE [Suspect]
     Active Substance: CYCLOPHOSPHAMIDE
     Dosage: UNK, AS A PART OF DARA-KTD-PACE REGIMEN, SECOND ROUTE OF ADMIN (FREE TEXT): UNKNOWN ROUTE
     Route: 065
  3. CYCLOPHOSPHAMIDE [Suspect]
     Active Substance: CYCLOPHOSPHAMIDE
     Dosage: UNK, AS A PART OF DARA-KTD-PACE REGIMEN, THIRD ROUTE OF ADMIN (FREE TEXT): UNKNOWN ROUTE
     Route: 065
  4. CARFILZOMIB [Suspect]
     Active Substance: CARFILZOMIB
     Dosage: UNK, AS A PART OF DARA-KTD-PACE REGIMEN, FIRST ROUTE OF ADMIN (FREE TEXT): UNKNOWN ROUTE
     Route: 065
  5. CARFILZOMIB [Suspect]
     Active Substance: CARFILZOMIB
     Indication: Plasma cell myeloma
     Dosage: UNK, AS A PART OF DARA-KTD-PACE REGIMEN, SECOND ROUTE OF ADMIN (FREE TEXT): UNKNOWN ROUTE
     Route: 065
  6. CARFILZOMIB [Suspect]
     Active Substance: CARFILZOMIB
     Dosage: UNK, AS A PART OF DARA-KTD-PACE REGIMEN, THIRD ROUTE OF ADMIN (FREE TEXT): UNKNOWN ROUTE
     Route: 065
  7. DEXAMETHASONE [Suspect]
     Active Substance: DEXAMETHASONE
     Dosage: UNK, AS A PART OF DARA-KTD-PACE REGIMEN, FIRST ROUTE OF ADMIN (FREE TEXT): UNKNOWN ROUTE
     Route: 065
  8. DEXAMETHASONE [Suspect]
     Active Substance: DEXAMETHASONE
     Dosage: UNK, AS A PART OF DARA-KTD-PACE REGIMEN, SECOND ROUTE OF ADMIN (FREE TEXT): UNKNOWN ROUTE
     Route: 065
  9. DEXAMETHASONE [Suspect]
     Active Substance: DEXAMETHASONE
     Indication: Plasma cell myeloma
     Dosage: UNK, AS A PART OF DARA-KTD-PACE REGIMEN, THIRD ROUTE OF ADMIN (FREE TEXT): UNKNOWN ROUTE
     Route: 065
  10. DOXORUBICIN [Suspect]
     Active Substance: DOXORUBICIN
     Dosage: UNK, AS A PART OF DARA-KTD-PACE REGIMEN, FIRST ROUTE OF ADMIN (FREE TEXT): UNKNOWN ROUTE
     Route: 065
  11. DOXORUBICIN [Suspect]
     Active Substance: DOXORUBICIN
     Indication: Plasma cell myeloma
     Dosage: UNK, AS A PART OF DARA-KTD-PACE REGIMEN, SECOND ROUTE OF ADMIN (FREE TEXT): UNKNOWN ROUTE
     Route: 065
  12. DOXORUBICIN [Suspect]
     Active Substance: DOXORUBICIN
     Dosage: UNK, AS A PART OF DARA-KTD-PACE REGIMEN, THIRD ROUTE OF ADMIN (FREE TEXT): UNKNOWN ROUTE
     Route: 065
  13. DARATUMUMAB [Suspect]
     Active Substance: DARATUMUMAB
     Dosage: UNK, AS A PART OF DARA-KTD-PACE REGIMEN, FIRST ROUTE OF ADMIN (FREE TEXT): UNKNOWN ROUTE
     Route: 065
  14. DARATUMUMAB [Suspect]
     Active Substance: DARATUMUMAB
     Dosage: UNK, AS A PART OF DARA-KTD-PACE REGIMEN, SECOND ROUTE OF ADMIN (FREE TEXT): UNKNOWN ROUTE
     Route: 065
  15. DARATUMUMAB [Suspect]
     Active Substance: DARATUMUMAB
     Indication: Plasma cell myeloma
     Dosage: UNK, AS A PART OF DARA-KTD-PACE REGIMEN, THIRD ROUTE OF ADMIN (FREE TEXT): UNKNOWN ROUTE
     Route: 065
  16. ETOPOSIDE [Suspect]
     Active Substance: ETOPOSIDE
     Dosage: UNK, AS A PART OF DARA-KTD-PACE REGIMEN, FIRST ROUTE OF ADMIN (FREE TEXT): UNKNOWN ROUTE
     Route: 065
  17. ETOPOSIDE [Suspect]
     Active Substance: ETOPOSIDE
     Indication: Plasma cell myeloma
     Dosage: UNK, AS A PART OF DARA-KTD-PACE REGIMEN, SECOND ROUTE OF ADMIN (FREE TEXT): UNKNOWN ROUTE
     Route: 065
  18. ETOPOSIDE [Suspect]
     Active Substance: ETOPOSIDE
     Dosage: UNK, AS A PART OF DARA-KTD-PACE REGIMEN, THIRD ROUTE OF ADMIN (FREE TEXT): UNKNOWN ROUTE
     Route: 065
  19. MELOXICAM [Suspect]
     Active Substance: MELOXICAM
     Indication: Plasma cell myeloma
     Dosage: UNK
     Route: 065
  20. MELOXICAM [Suspect]
     Active Substance: MELOXICAM
     Indication: Plasma cell myeloma
     Dosage: UNK ROUTE OF ADMIN (FREE TEXT): UNKNOWN ROUTE
     Route: 065
  21. PLATINOL [Suspect]
     Active Substance: CISPLATIN
     Dosage: UNK, AS A PART OF DARA-KTD-PACE REGIMEN, FIRST ROUTE OF ADMIN (FREE TEXT): UNKNOWN ROUTE
     Route: 065
  22. PLATINOL [Suspect]
     Active Substance: CISPLATIN
     Dosage: UNK, AS A PART OF DARA-KTD-PACE REGIMEN, SECOND ROUTE OF ADMIN (FREE TEXT): UNKNOWN ROUTE
     Route: 065
  23. PLATINOL [Suspect]
     Active Substance: CISPLATIN
     Indication: Plasma cell myeloma
     Dosage: UNK, AS A PART OF DARA-KTD-PACE REGIMEN, THIRD ROUTE OF ADMIN (FREE TEXT): UNKNOWN ROUTE
     Route: 065
  24. TECLISTAMAB [Suspect]
     Active Substance: TECLISTAMAB
     Indication: Plasma cell myeloma
     Dosage: UNK
     Route: 065
  25. TECVAYLI [Suspect]
     Active Substance: TECLISTAMAB-CQYV
     Indication: Plasma cell myeloma
     Dosage: UNK ROUTE OF ADMIN (FREE TEXT): UNKNOWN ROUTE
     Route: 065
  26. THALIDOMIDE [Suspect]
     Active Substance: THALIDOMIDE
     Indication: Plasma cell myeloma
     Dosage: UNK, AS A PART OF DARA-KTD-PACE REGIMEN, FIRST ROUTE OF ADMIN (FREE TEXT): UNKNOWN ROUTE
     Route: 065
  27. THALIDOMIDE [Suspect]
     Active Substance: THALIDOMIDE
     Dosage: UNK, AS A PART OF DARA-KTD-PACE REGIMEN, SECOND ROUTE OF ADMIN (FREE TEXT): UNKNOWN ROUTE
     Route: 065
  28. THALIDOMIDE [Suspect]
     Active Substance: THALIDOMIDE
     Dosage: UNK, AS A PART OF DARA-KTD-PACE REGIMEN, THIRD ROUTE OF ADMIN (FREE TEXT): UNKNOWN ROUTE
     Route: 065

REACTIONS (4)
  - Cytokine release syndrome [Recovered/Resolved]
  - Intervertebral discitis [Unknown]
  - Respiratory tract infection [Unknown]
  - White blood cell count increased [Unknown]
